FAERS Safety Report 20547373 (Version 2)
Quarter: 2022Q2

REPORT INFORMATION
  Report Type: Report from Study
  Country: MX (occurrence: MX)
  Receive Date: 20220303
  Receipt Date: 20220402
  Transmission Date: 20220720
  Serious: Yes (Death, Other)
  Sender: FDA-Public Use
  Company Number: MX-NOVARTISPH-NVSC2022MX050476

PATIENT
  Sex: Female
  Weight: 61 kg

DRUGS (1)
  1. ENTRESTO [Suspect]
     Active Substance: SACUBITRIL\VALSARTAN
     Indication: Cardiac failure
     Dosage: 50 MG
     Route: 048

REACTIONS (4)
  - COVID-19 [Fatal]
  - Septic shock [Fatal]
  - Renal failure [Fatal]
  - Fluid retention [Fatal]
